FAERS Safety Report 4895138-9 (Version None)
Quarter: 2006Q1

REPORT INFORMATION
  Report Type: 
  Country: None (occurrence: None)
  Receive Date: 20060125
  Receipt Date: 20060112
  Transmission Date: 20060701
  Serious: Yes (Other)
  Sender: FDA-Public Use
  Company Number: 2006RR-01487

PATIENT
  Age: 88 Year
  Sex: Female

DRUGS (7)
  1. TRAMADOL HCL [Suspect]
     Indication: FALL
     Dates: start: 20041001, end: 20041112
  2. ACETAMINOPHEN [Suspect]
     Indication: FALL
     Dates: start: 20041001, end: 20041112
  3. FLUOXETINE [Suspect]
     Indication: DEPRESSION
     Dates: start: 20040101
  4. TRIMETHOPRIM [Concomitant]
  5. DIGOXIN [Concomitant]
  6. BENDROFLUAZIDE (BENDROFLUMETHIAZIDE) [Concomitant]
  7. BIFONAZOLE [Concomitant]

REACTIONS (3)
  - DRUG INTERACTION [None]
  - FALL [None]
  - SEROTONIN SYNDROME [None]
